FAERS Safety Report 15786650 (Version 1)
Quarter: 2019Q1

REPORT INFORMATION
  Report Type: Report from Study
  Country: GB (occurrence: GB)
  Receive Date: 20190103
  Receipt Date: 20190103
  Transmission Date: 20190417
  Serious: Yes (Hospitalization)
  Sender: FDA-Public Use
  Company Number: GB-JNJFOC-20181225693

PATIENT
  Age: 62 Year
  Sex: Female
  Weight: 81 kg

DRUGS (7)
  1. DOXYCYCLINE. [Concomitant]
     Active Substance: DOXYCYCLINE
     Route: 065
     Dates: start: 20121218
  2. CHLORPHENAMINE [Concomitant]
     Active Substance: CHLORPHENIRAMINE MALEATE
     Route: 065
     Dates: start: 20140501
  3. SERTRALINE [Concomitant]
     Active Substance: SERTRALINE HYDROCHLORIDE
     Route: 065
     Dates: start: 20131003
  4. ATORVASTATIN [Concomitant]
     Active Substance: ATORVASTATIN
     Route: 065
     Dates: start: 20150512
  5. STELARA [Suspect]
     Active Substance: USTEKINUMAB
     Indication: PSORIASIS
     Route: 058
     Dates: start: 20131119
  6. BISOPROLOL [Concomitant]
     Active Substance: BISOPROLOL
     Route: 065
     Dates: start: 20150512
  7. ASPIRIN. [Concomitant]
     Active Substance: ASPIRIN
     Route: 065
     Dates: start: 20150512

REACTIONS (1)
  - Cellulitis [Recovered/Resolved]

NARRATIVE: CASE EVENT DATE: 20181021
